FAERS Safety Report 7711951-4 (Version None)
Quarter: 2011Q3

REPORT INFORMATION
  Report Type: 
  Country: None (occurrence: None)
  Receive Date: 20110826
  Receipt Date: 20110824
  Transmission Date: 20111222
  Serious: Yes (Hospitalization)
  Sender: FDA-Public Use
  Company Number: US-BRISTOL-MYERS SQUIBB COMPANY-14521058

PATIENT
  Age: 73 Year
  Sex: Male

DRUGS (5)
  1. DASATINIB [Suspect]
     Indication: PROSTATE CANCER
     Dosage: 1 DOSAGE FORM=100(UNITS NOT SPECIFIED)
     Route: 048
     Dates: start: 20080822
  2. TAXOTERE [Suspect]
     Indication: PROSTATE CANCER
     Dosage: 1 DOSAGE FORM=125(UNITS NOT SPEC)
     Route: 042
     Dates: start: 20080820
  3. ATENOLOL [Concomitant]
     Dates: start: 20081017
  4. PREDNISONE [Concomitant]
     Dates: start: 20080820
  5. DUONEB [Concomitant]
     Dates: start: 20070720

REACTIONS (5)
  - PYREXIA [None]
  - ATRIAL FIBRILLATION [None]
  - SUBCUTANEOUS ABSCESS [None]
  - CARDIAC FAILURE CONGESTIVE [None]
  - BRONCHITIS [None]
